FAERS Safety Report 23542130 (Version 1)
Quarter: 2024Q1

REPORT INFORMATION
  Report Type: Spontaneous
  Country: US (occurrence: US)
  Receive Date: 20240220
  Receipt Date: 20240220
  Transmission Date: 20240409
  Serious: No
  Sender: FDA-Public Use
  Company Number: US-AUROBINDO-AUR-APL-2023-010209

PATIENT
  Age: 6 Year
  Sex: Male
  Weight: 17.23 kg

DRUGS (1)
  1. AMOXICILLIN [Suspect]
     Active Substance: AMOXICILLIN
     Indication: Pharyngitis streptococcal
     Dosage: UNK UNK, TWO TIMES A DAY
     Route: 065
     Dates: start: 20230218, end: 20230224

REACTIONS (3)
  - Serum sickness [Recovered/Resolved]
  - Urticaria [Recovered/Resolved]
  - Product quality issue [Unknown]

NARRATIVE: CASE EVENT DATE: 20230225
